FAERS Safety Report 17991817 (Version 1)
Quarter: 2020Q3

REPORT INFORMATION
  Report Type: Spontaneous
  Country: GB (occurrence: GB)
  Receive Date: 20200707
  Receipt Date: 20200707
  Transmission Date: 20201103
  Serious: Yes (Other)
  Sender: FDA-Public Use
  Company Number: GB-JNJFOC-20200633900

PATIENT

DRUGS (1)
  1. HUMAN CLOTTABLE PROTEIN/HUMAN THROMBIN [Suspect]
     Active Substance: FIBRINOGEN HUMAN\THROMBIN HUMAN
     Indication: PROPHYLAXIS
     Route: 061

REACTIONS (8)
  - Drug ineffective [Unknown]
  - Wound dehiscence [Unknown]
  - Haematoma [Unknown]
  - Off label use [Unknown]
  - Wound infection [Unknown]
  - Product use in unapproved indication [Unknown]
  - Seroma [Unknown]
  - Facial paralysis [Unknown]
